FAERS Safety Report 4721468-7 (Version None)
Quarter: 2005Q3

REPORT INFORMATION
  Report Type: 
  Country: None (occurrence: None)
  Receive Date: 20050721
  Receipt Date: 20040927
  Transmission Date: 20060218
  Serious: No
  Sender: FDA-Public Use
  Company Number: US-BRISTOL-MYERS SQUIBB COMPANY-12713442

PATIENT
  Sex: Male

DRUGS (7)
  1. COUMADIN [Suspect]
     Indication: CARDIAC VALVE DISEASE
     Dosage: 5 MG ONCE DAILY INITIALLY, DOSE INCR A FEW MONTHS LATER TO 7.5MG, AND CURRENTLY ON 10 MG
     Route: 048
     Dates: start: 20040101
  2. COUMADIN [Suspect]
     Indication: THROMBOSIS
     Dosage: 5 MG ONCE DAILY INITIALLY, DOSE INCR A FEW MONTHS LATER TO 7.5MG, AND CURRENTLY ON 10 MG
     Route: 048
     Dates: start: 20040101
  3. ADVAIR DISKUS 100/50 [Concomitant]
     Dosage: 100/50
  4. LIPITOR [Concomitant]
  5. DIOVAN [Concomitant]
  6. POTASSIUM CHLORIDE [Concomitant]
  7. PREVACID [Concomitant]

REACTIONS (1)
  - HYPERGLYCAEMIA [None]
